FAERS Safety Report 4810936-5 (Version None)
Quarter: 2005Q4

REPORT INFORMATION
  Report Type: 
  Country: None (occurrence: None)
  Receive Date: 20051025
  Receipt Date: 20051012
  Transmission Date: 20060501
  Serious: Yes (Other)
  Sender: FDA-Public Use
  Company Number: 2005142338

PATIENT
  Age: 19 Year
  Sex: Female
  Weight: 90.7194 kg

DRUGS (1)
  1. GEODON [Suspect]
     Indication: OBSESSIVE-COMPULSIVE DISORDER

REACTIONS (2)
  - GALACTORRHOEA [None]
  - GASTRIC BYPASS [None]
